FAERS Safety Report 13376555 (Version 3)
Quarter: 2017Q2

REPORT INFORMATION
  Report Type: Spontaneous
  Country: US (occurrence: US)
  Receive Date: 20170328
  Receipt Date: 20170410
  Transmission Date: 20170830
  Serious: No
  Sender: FDA-Public Use
  Company Number: US-PFIZER INC-2017132108

PATIENT
  Age: 91 Year
  Sex: Male

DRUGS (4)
  1. LYRICA [Suspect]
     Active Substance: PREGABALIN
     Dosage: ONE PILL TODAY
  2. LYRICA [Suspect]
     Active Substance: PREGABALIN
     Indication: LUMBAR SPINAL STENOSIS
     Dosage: 2 PILLS ON TUESDAY, ONE IN THE MORNING AND ONE IN THE AFTERNOON
  3. LYRICA [Suspect]
     Active Substance: PREGABALIN
     Indication: NERVE COMPRESSION
     Dosage: 2 ON WEDNESDAY
  4. LYRICA [Suspect]
     Active Substance: PREGABALIN
     Dosage: 75 MG, UNK (TAKING JUST 5 CAPSULES)/ (ONLY TOOK 5 PILLS)

REACTIONS (11)
  - Speech disorder [Unknown]
  - Dyspnoea [Unknown]
  - Dysstasia [Unknown]
  - Gait disturbance [Unknown]
  - Feeling cold [Unknown]
  - Muscle spasms [Unknown]
  - Muscle twitching [Unknown]
  - Constipation [Unknown]
  - Tremor [Unknown]
  - General physical health deterioration [Unknown]
  - Disorientation [Unknown]
